FAERS Safety Report 23694069 (Version 3)
Quarter: 2024Q2

REPORT INFORMATION
  Report Type: Report from Study
  Country: CA (occurrence: CA)
  Receive Date: 20240401
  Receipt Date: 20240508
  Transmission Date: 20240715
  Serious: Yes (Hospitalization, Other)
  Sender: FDA-Public Use
  Company Number: CA-ABBVIE-5696193

PATIENT
  Age: 63 Year
  Sex: Male

DRUGS (3)
  1. SKYRIZI [Suspect]
     Active Substance: RISANKIZUMAB-RZAA
     Indication: Crohn^s disease
     Dosage: LAST ADMIN DATE 2023?WEEK 0, WEEK 4 AND WEEK 8
     Route: 042
     Dates: start: 202312
  2. SKYRIZI [Suspect]
     Active Substance: RISANKIZUMAB-RZAA
     Indication: Crohn^s disease
     Dosage: WEEK 0, 4, 8 THEN SUBCUTANEOUS
     Route: 042
     Dates: start: 20240403
  3. SKYRIZI [Suspect]
     Active Substance: RISANKIZUMAB-RZAA
     Indication: Crohn^s disease
     Dosage: WEEK 0, WEEK 4 AND WEEK 8
     Route: 042
     Dates: start: 20231011, end: 202311

REACTIONS (10)
  - Seizure [Recovered/Resolved with Sequelae]
  - Spinal fracture [Unknown]
  - Malaise [Recovered/Resolved]
  - Atrial fibrillation [Unknown]
  - Lower respiratory tract infection [Recovered/Resolved]
  - Lower respiratory tract infection [Recovered/Resolved]
  - Pneumonia [Unknown]
  - Gastric infection [Recovered/Resolved]
  - Back pain [Unknown]
  - Pyrexia [Unknown]

NARRATIVE: CASE EVENT DATE: 20230101
